FAERS Safety Report 4978751-X (Version None)
Quarter: 2006Q2

REPORT INFORMATION
  Report Type: 
  Country: None (occurrence: None)
  Receive Date: 20060420
  Receipt Date: 20050829
  Transmission Date: 20061013
  Serious: Yes (Hospitalization)
  Sender: FDA-Public Use
  Company Number: US-MERCK-0508USA04609

PATIENT
  Age: 54 Year
  Sex: Female
  Weight: 91 kg

DRUGS (1)
  1. VIOXX [Suspect]
     Route: 048
     Dates: start: 20021213

REACTIONS (16)
  - ABDOMINAL PAIN [None]
  - ANXIETY [None]
  - BRONCHITIS ACUTE [None]
  - CARDIOMEGALY [None]
  - CHRONIC OBSTRUCTIVE PULMONARY DISEASE [None]
  - DIARRHOEA [None]
  - DYSPEPSIA [None]
  - HYPERTENSION [None]
  - INSOMNIA [None]
  - MUSCULOSKELETAL CHEST PAIN [None]
  - MUSCULOSKELETAL PAIN [None]
  - NAUSEA [None]
  - NON-CARDIAC CHEST PAIN [None]
  - PLEURISY [None]
  - SCHIZOAFFECTIVE DISORDER [None]
  - VAGINAL INFECTION [None]
